FAERS Safety Report 25088446 (Version 2)
Quarter: 2025Q3

REPORT INFORMATION
  Report Type: Report from Study
  Country: US (occurrence: US)
  Receive Date: 20250318
  Receipt Date: 20250803
  Transmission Date: 20251021
  Serious: Yes (Hospitalization, Other)
  Sender: ALEXION PHARMACEUTICALS
  Company Number: US-AstraZeneca-CH-00826598A

PATIENT
  Age: 48 Year
  Sex: Female

DRUGS (1)
  1. TEZEPELUMAB [Suspect]
     Active Substance: TEZEPELUMAB
     Route: 065

REACTIONS (18)
  - Myxoma [Unknown]
  - Cardiac failure chronic [Unknown]
  - Dilated cardiomyopathy [Unknown]
  - Wheezing [Unknown]
  - Syncope [Unknown]
  - Pruritus [Unknown]
  - Dyspnoea [Recovering/Resolving]
  - Nausea [Unknown]
  - Weight decreased [Unknown]
  - Hypotension [Unknown]
  - Chest discomfort [Unknown]
  - Fatigue [Unknown]
  - Pain [Unknown]
  - Tachycardia [Unknown]
  - Vomiting [Unknown]
  - Vertigo [Unknown]
  - Urticaria [Unknown]
  - Asthma [Unknown]

NARRATIVE: CASE EVENT DATE: 20231001
